FAERS Safety Report 24668040 (Version 1)
Quarter: 2024Q4

REPORT INFORMATION
  Report Type: Spontaneous
  Country: CA (occurrence: CA)
  Receive Date: 20241127
  Receipt Date: 20241127
  Transmission Date: 20250115
  Serious: Yes (Other)
  Sender: ROCHE
  Company Number: CA-002147023-PHHY2010CA73808

PATIENT
  Age: 73 Year
  Sex: Male

DRUGS (3)
  1. LUCENTIS [Suspect]
     Active Substance: RANIBIZUMAB
     Indication: Choroidal neovascularisation
     Dosage: 05. MG MONTHLY
     Route: 050
     Dates: start: 20100513
  2. LUCENTIS [Suspect]
     Active Substance: RANIBIZUMAB
     Dosage: 0.5 MG MONTHLY
     Route: 050
     Dates: start: 20101022
  3. ZYMAR [Concomitant]
     Active Substance: GATIFLOXACIN
     Indication: Product used for unknown indication
     Dosage: UNK, QID
     Route: 065

REACTIONS (6)
  - Vitritis [Recovering/Resolving]
  - Vitreous floaters [Unknown]
  - Visual acuity reduced [Unknown]
  - Eye inflammation [Unknown]
  - Anterior chamber cell [Unknown]
  - Vitreal cells [Unknown]

NARRATIVE: CASE EVENT DATE: 20101025
